FAERS Safety Report 13871313 (Version 1)
Quarter: 2017Q3

REPORT INFORMATION
  Report Type: Spontaneous
  Country: FR (occurrence: FR)
  Receive Date: 20170816
  Receipt Date: 20170816
  Transmission Date: 20171127
  Serious: Yes (Death, Other)
  Sender: FDA-Public Use
  Company Number: FR-UCBSA-2017031706

PATIENT
  Age: 65 Year
  Sex: Female

DRUGS (6)
  1. TEMOZOLOMIDE. [Suspect]
     Active Substance: TEMOZOLOMIDE
     Indication: GLIOBLASTOMA
     Dosage: 1 DF, ONCE DAILY (QD), 140 MG/DAY
     Route: 048
     Dates: start: 20170411, end: 20170512
  2. KEPPRA [Suspect]
     Active Substance: LEVETIRACETAM
     Indication: EPILEPSY
     Dosage: STRENGTH: 500MG, 1 DF, ONCE DAILY (QD), SINCE LONG-TERM
     Route: 048
     Dates: end: 20170620
  3. TOPALGIC [TRAMADOL HYDROCHLORIDE] [Suspect]
     Active Substance: TRAMADOL HYDROCHLORIDE
     Indication: PAIN MANAGEMENT
     Dosage: 500 MG, ONCE DAILY (QD)
     Route: 048
     Dates: end: 20170620
  4. ATARAX [Suspect]
     Active Substance: HYDROXYZINE HYDROCHLORIDE
     Indication: ANXIETY
     Dosage: STRENGTH:25 MG, 1 DF, ONCE DAILY (QD), SINCE LONG-TERM
     Route: 048
     Dates: end: 20170620
  5. SOLUPRED [Suspect]
     Active Substance: PREDNISOLONE
     Indication: ADRENOCORTICAL STEROID THERAPY
     Dosage: STRENGTH:20 MG,1 DF, ONCE DAILY (QD), SINCE LONG-TERM
     Route: 048
     Dates: end: 20170620
  6. SULFAMETHOXAZOLE AND TRIMETHOPRIM [Suspect]
     Active Substance: SULFAMETHOXAZOLE\TRIMETHOPRIM
     Indication: ANTIBIOTIC PROPHYLAXIS
     Dosage: DAILY DOSE : 800 MG/160 MG
     Route: 048
     Dates: start: 20170505, end: 20170528

REACTIONS (2)
  - Pancytopenia [Fatal]
  - Off label use [Unknown]

NARRATIVE: CASE EVENT DATE: 20170524
